FAERS Safety Report 8523853-4 (Version None)
Quarter: 2012Q3

REPORT INFORMATION
  Report Type: 
  Country: None (occurrence: None)
  Receive Date: 20120720
  Receipt Date: 20120713
  Transmission Date: 20120928
  Serious: Yes (Hospitalization, Other)
  Sender: FDA-Public Use
  Company Number: US-B.I. PHARMACEUTICALS,INC./RIDGEFIELD-2012-BP-15665BP

PATIENT
  Age: 52 Year
  Sex: Female

DRUGS (10)
  1. LASIX [Concomitant]
  2. LIPITOR [Concomitant]
  3. LEVOXYL [Concomitant]
  4. ESTRATEST H.S. [Concomitant]
  5. PRADAXA [Suspect]
     Dates: start: 20110623
  6. IBUPROFEN [Concomitant]
     Indication: PAIN
  7. ASPIRIN [Concomitant]
  8. NAPROXEN [Concomitant]
     Indication: PAIN
  9. PROMETRIUM [Concomitant]
  10. DRONEDARONE HCL [Suspect]
     Indication: ATRIAL FIBRILLATION
     Dosage: 800 MG
     Route: 048
     Dates: start: 20110623, end: 20120210

REACTIONS (3)
  - PULMONARY HAEMORRHAGE [None]
  - PLEURAL EFFUSION [None]
  - INTERSTITIAL LUNG DISEASE [None]
